APPROVED DRUG PRODUCT: AMANTADINE HYDROCHLORIDE
Active Ingredient: AMANTADINE HYDROCHLORIDE
Strength: 100MG
Dosage Form/Route: CAPSULE;ORAL
Application: A207570 | Product #001
Applicant: INVAGEN PHARMACEUTICALS INC
Approved: Sep 30, 2016 | RLD: No | RS: No | Type: DISCN